FAERS Safety Report 12484797 (Version 1)
Quarter: 2016Q2

REPORT INFORMATION
  Report Type: Spontaneous
  Country: US (occurrence: None)
  Receive Date: 20160620
  Receipt Date: 20160620
  Transmission Date: 20160815
  Serious: No
  Sender: FDA-Public Use
  Company Number: None

PATIENT
  Age: 31 Year
  Sex: Male

DRUGS (12)
  1. IRON [Concomitant]
     Active Substance: IRON
  2. PANTOPRAZOLE [Concomitant]
     Active Substance: PANTOPRAZOLE SODIUM
  3. CAPECITABINE 500MG TAB TEVA [Suspect]
     Active Substance: CAPECITABINE
     Indication: COLON CANCER
     Dosage: 1500MG AM DAILY FOR 14 DAYS PO
     Route: 048
     Dates: start: 20160419
  4. OXALPLATIN [Concomitant]
  5. ZOFRAN [Concomitant]
     Active Substance: ONDANSETRON HYDROCHLORIDE
  6. DEXAMETH SOD POW PHOSPHAT [Concomitant]
  7. SOD CHLORIDE [Concomitant]
  8. LEUCOVOR CA [Concomitant]
  9. DIPHENHYDRAM [Concomitant]
  10. GRANISETRON [Concomitant]
     Active Substance: GRANISETRON
  11. IMODIUM ADV [Concomitant]
  12. HEPARIN LCOK [Concomitant]

REACTIONS (3)
  - Neuropathy peripheral [None]
  - Nausea [None]
  - Alopecia [None]

NARRATIVE: CASE EVENT DATE: 201605
